FAERS Safety Report 9105577 (Version 1)
Quarter: 2013Q1

REPORT INFORMATION
  Report Type: Spontaneous
  Country: US (occurrence: US)
  Receive Date: 20130220
  Receipt Date: 20130220
  Transmission Date: 20140127
  Serious: No
  Sender: FDA-Public Use
  Company Number: US-TEVA-387250USA

PATIENT
  Age: 38 Year
  Sex: Female
  Weight: 82.63 kg

DRUGS (5)
  1. COPAXONE [Suspect]
     Indication: MULTIPLE SCLEROSIS
     Dosage: 20 MILLIGRAM DAILY;
     Route: 058
     Dates: start: 200912
  2. GABAPENTIN [Concomitant]
     Indication: MULTIPLE SCLEROSIS
     Route: 048
  3. BACLOFEN [Concomitant]
     Indication: MULTIPLE SCLEROSIS
     Route: 048
  4. AMANTADINE [Concomitant]
     Route: 048
  5. CITALOPRAM [Concomitant]
     Indication: ANXIETY
     Route: 048

REACTIONS (1)
  - Urticaria [Not Recovered/Not Resolved]
